FAERS Safety Report 12555345 (Version 1)
Quarter: 2016Q3

REPORT INFORMATION
  Report Type: Spontaneous
  Country: US (occurrence: US)
  Receive Date: 20160714
  Receipt Date: 20160714
  Transmission Date: 20161109
  Serious: No
  Sender: FDA-Public Use
  Company Number: US-BEH-2016070999

PATIENT
  Sex: Female
  Weight: 39.2 kg

DRUGS (25)
  1. HIZENTRA [Suspect]
     Active Substance: HUMAN IMMUNOGLOBULIN G
     Indication: HUMORAL IMMUNE DEFECT
     Dosage: 6 G, QW
     Route: 058
  2. ACETAMINOPHEN. [Concomitant]
     Active Substance: ACETAMINOPHEN
  3. EPIPEN [Concomitant]
     Active Substance: EPINEPHRINE
  4. OMNITROPE [Concomitant]
     Active Substance: SOMATROPIN
  5. ASPIRIN. [Concomitant]
     Active Substance: ASPIRIN
  6. HIZENTRA [Suspect]
     Active Substance: HUMAN IMMUNOGLOBULIN G
     Indication: HYPOGAMMAGLOBULINAEMIA
     Dosage: UNK
     Route: 058
  7. CARNITOR [Concomitant]
     Active Substance: LEVOCARNITINE
  8. SYNTHROID [Concomitant]
     Active Substance: LEVOTHYROXINE SODIUM
  9. ZYRTEC [Concomitant]
     Active Substance: CETIRIZINE HYDROCHLORIDE
  10. SINGULAIR [Concomitant]
     Active Substance: MONTELUKAST SODIUM
  11. ACIDOPHILUS [Concomitant]
     Active Substance: LACTOBACILLUS ACIDOPHILUS
  12. CARBAGLU [Concomitant]
     Active Substance: CARGLUMIC ACID
  13. HIZENTRA [Suspect]
     Active Substance: HUMAN IMMUNOGLOBULIN G
     Indication: AMINO ACID METABOLISM DISORDER
     Dosage: UNK
     Route: 058
  14. DIPHENHYDRAMINE. [Concomitant]
     Active Substance: DIPHENHYDRAMINE
  15. ARIMIDEX [Concomitant]
     Active Substance: ANASTROZOLE
  16. NASONEX [Concomitant]
     Active Substance: MOMETASONE FUROATE
  17. ZOFRAN [Concomitant]
     Active Substance: ONDANSETRON HYDROCHLORIDE
  18. VITAMIN D3 [Concomitant]
     Active Substance: CHOLECALCIFEROL
  19. LMX                                /00033401/ [Concomitant]
  20. NYSTATIN. [Concomitant]
     Active Substance: NYSTATIN
  21. KEFLEX [Concomitant]
     Active Substance: CEPHALEXIN
  22. PREVACID [Concomitant]
     Active Substance: LANSOPRAZOLE
  23. PATANASE [Concomitant]
     Active Substance: OLOPATADINE HYDROCHLORIDE
  24. ALBUTEROL SULFATE. [Concomitant]
     Active Substance: ALBUTEROL SULFATE
  25. MIRALAX [Concomitant]
     Active Substance: POLYETHYLENE GLYCOL 3350

REACTIONS (1)
  - Ear infection [Unknown]
